FAERS Safety Report 24954938 (Version 1)
Quarter: 2025Q1

REPORT INFORMATION
  Report Type: Spontaneous
  Country: US (occurrence: None)
  Receive Date: 20250211
  Receipt Date: 20250211
  Transmission Date: 20250409
  Serious: Yes (Hospitalization)
  Sender: FDA-CTU
  Company Number: None

PATIENT
  Age: 59 Year
  Sex: Male
  Weight: 72 kg

DRUGS (2)
  1. CARBOPLATIN [Suspect]
     Active Substance: CARBOPLATIN
     Dates: end: 20221116
  2. TAXOL [Suspect]
     Active Substance: PACLITAXEL
     Dates: end: 20221116

REACTIONS (11)
  - Dysphagia [None]
  - Odynophagia [None]
  - Constipation [None]
  - Oesophageal carcinoma [None]
  - Pulmonary mass [None]
  - Emphysema [None]
  - Inflammation [None]
  - Lung opacity [None]
  - Lung adenocarcinoma [None]
  - Interstitial lung disease [None]
  - SARS-CoV-2 test positive [None]

NARRATIVE: CASE EVENT DATE: 20220125
